FAERS Safety Report 8534399-1 (Version None)
Quarter: 2012Q3

REPORT INFORMATION
  Report Type: 
  Country: None (occurrence: None)
  Receive Date: 20120724
  Receipt Date: 20120720
  Transmission Date: 20120928
  Serious: Yes (Hospitalization, Other)
  Sender: FDA-Public Use
  Company Number: PHFR2012GB000543

PATIENT
  Sex: Male
  Weight: 97.5 kg

DRUGS (6)
  1. PAROXETINE [Concomitant]
     Indication: DEPRESSION
     Dosage: 30 MG, UNK
     Route: 048
  2. CLOZARIL [Suspect]
     Indication: SCHIZOPHRENIA
     Dosage: UNK UKN, UNK
     Route: 048
     Dates: start: 19991215
  3. SIMVASTATIN [Concomitant]
     Indication: BLOOD CHOLESTEROL INCREASED
     Dosage: 40 MG, QD
     Route: 048
  4. TAMSULOSIN HCL [Concomitant]
     Indication: URINARY INCONTINENCE
     Dosage: 0.4 MG, QD
  5. CLOZARIL [Suspect]
     Dosage: 625 MG, QD
     Route: 048
  6. HYOSCINE HYDROBROMIDE [Concomitant]
     Indication: SALIVARY HYPERSECRETION
     Dosage: 900 UG, QD
     Route: 048

REACTIONS (6)
  - BLADDER DIVERTICULUM [None]
  - PLATELET COUNT DECREASED [None]
  - BODY TEMPERATURE INCREASED [None]
  - UROSEPSIS [None]
  - NASOPHARYNGITIS [None]
  - METABOLIC SYNDROME [None]
